FAERS Safety Report 13105864 (Version 2)
Quarter: 2017Q1

REPORT INFORMATION
  Report Type: Other
  Country: US (occurrence: US)
  Receive Date: 20170111
  Receipt Date: 20170313
  Transmission Date: 20170428
  Serious: Yes (Other)
  Sender: FDA-Public Use
  Company Number: US-ACORDA-ACO_132299_2016

PATIENT
  Age: 59 Year
  Sex: Female

DRUGS (1)
  1. AMPYRA [Suspect]
     Active Substance: DALFAMPRIDINE
     Indication: COORDINATION ABNORMAL
     Dosage: 10 MG, Q 12 HRS
     Route: 048
     Dates: start: 20160622, end: 20170115

REACTIONS (4)
  - Therapy cessation [Unknown]
  - Gait disturbance [Not Recovered/Not Resolved]
  - Lower limb fracture [Recovering/Resolving]
  - Off label use [Unknown]

NARRATIVE: CASE EVENT DATE: 20160622
